FAERS Safety Report 5083953-0 (Version None)
Quarter: 2006Q3

REPORT INFORMATION
  Report Type: 
  Country: None (occurrence: None)
  Receive Date: 20060727
  Receipt Date: 20060422
  Transmission Date: 20061208
  Serious: Yes (Other)
  Sender: FDA-Public Use
  Company Number: 2006055267

PATIENT
  Age: 63 Year
  Sex: Female
  Weight: 61.6892 kg

DRUGS (6)
  1. LYRICA [Suspect]
     Indication: PAIN IN EXTREMITY
     Dosage: 150 MG (50 MG 3 IN 1 D) UNKNOWN
     Route: 065
     Dates: start: 20060401
  2. ASPIRIN [Concomitant]
  3. PROTONIX [Concomitant]
  4. METFORMIN HCL [Concomitant]
  5. ZYRTEC [Concomitant]
  6. PREMARIN [Concomitant]

REACTIONS (1)
  - DRUG INEFFECTIVE [None]
